FAERS Safety Report 17740993 (Version 1)
Quarter: 2020Q2

REPORT INFORMATION
  Report Type: Spontaneous
  Country: FR (occurrence: FR)
  Receive Date: 20200504
  Receipt Date: 20200504
  Transmission Date: 20200714
  Serious: Yes (Other)
  Sender: FDA-Public Use
  Company Number: FR-MYLANLABS-2020M1043008

PATIENT
  Age: 73 Year
  Sex: Female

DRUGS (3)
  1. DIMETHICONE. [Suspect]
     Active Substance: DIMETHICONE
     Indication: PRODUCT USED FOR UNKNOWN INDICATION
     Dosage: LIQUID DIMETICONE INJECTABLE FILLER
     Route: 065
  2. METHOTREXATE. [Suspect]
     Active Substance: METHOTREXATE
     Indication: SILICON GRANULOMA
  3. METHOTREXATE. [Suspect]
     Active Substance: METHOTREXATE
     Indication: FOREIGN BODY REACTION
     Dosage: 15 MILLIGRAM, QW
     Route: 048

REACTIONS (3)
  - Silicon granuloma [Recovered/Resolved]
  - Hepatocellular injury [Recovered/Resolved]
  - Foreign body reaction [Recovered/Resolved]
